FAERS Safety Report 4468328-7 (Version None)
Quarter: 2004Q4

REPORT INFORMATION
  Report Type: 
  Country: None (occurrence: None)
  Receive Date: 20041007
  Receipt Date: 20040927
  Transmission Date: 20050328
  Serious: Yes (Hospitalization)
  Sender: FDA-Public Use
  Company Number: US-ROCHE-381543

PATIENT
  Age: 50 Year
  Sex: Female
  Weight: 72.6 kg

DRUGS (3)
  1. XELODA [Suspect]
     Indication: BREAST CANCER
     Route: 048
     Dates: start: 20040804, end: 20040815
  2. HERCEPTIN [Concomitant]
  3. SYNTHROID [Concomitant]

REACTIONS (10)
  - DIALYSIS [None]
  - DIARRHOEA [None]
  - INTESTINAL OBSTRUCTION [None]
  - PALMAR-PLANTAR ERYTHRODYSAESTHESIA SYNDROME [None]
  - PLATELET COUNT DECREASED [None]
  - PYREXIA [None]
  - RECTAL HAEMORRHAGE [None]
  - RENAL DISORDER [None]
  - STOMATITIS [None]
  - WHITE BLOOD CELL COUNT DECREASED [None]
